FAERS Safety Report 8806931 (Version 1)
Quarter: 2012Q4

REPORT INFORMATION
  Report Type: 
  Country: DE (occurrence: DE)
  Receive Date: 20120925
  Receipt Date: 20120925
  Transmission Date: 20130627
  Serious: Yes (Life-Threatening, Hospitalization)
  Sender: FDA-Public Use
  Company Number: DE-BRISTOL-MYERS SQUIBB COMPANY-16970543

PATIENT
  Age: 85 Year
  Sex: Female
  Weight: 67 kg

DRUGS (16)
  1. METFORMIN HCL [Suspect]
     Indication: TYPE 2 DIABETES MELLITUS
     Dosage: also received 850mg 2/1 Day on 1Feb12
     Route: 048
     Dates: start: 20120111
  2. LEVOTHYROXIN [Concomitant]
     Route: 048
  3. ALLOPURINOL [Concomitant]
     Route: 048
  4. DETRUSITOL [Concomitant]
     Route: 048
  5. TEBONIN [Concomitant]
     Route: 048
  6. CAPTOPRIL [Concomitant]
     Route: 048
  7. STILNOX [Concomitant]
     Route: 048
  8. REMERON [Concomitant]
     Dosage: film coated tabs
     Route: 048
  9. TOREM [Concomitant]
     Route: 048
  10. AQUAPHOR [Concomitant]
     Route: 048
  11. AMLODIPINE [Concomitant]
     Route: 048
  12. ACETYLSALICYLIC ACID [Concomitant]
     Route: 048
  13. PANTOZOL [Concomitant]
     Route: 048
  14. BELOC-ZOK MITE [Concomitant]
     Route: 048
  15. NACOM [Concomitant]
     Route: 048
  16. CEFUROXIME [Concomitant]
     Route: 048
     Dates: start: 20111221

REACTIONS (4)
  - Renal failure acute [Recovered/Resolved]
  - Lactic acidosis [Recovered/Resolved]
  - Hyperkalaemia [Recovered/Resolved]
  - Atrioventricular block complete [Recovered/Resolved]
